FAERS Safety Report 17936867 (Version 1)
Quarter: 2020Q2

REPORT INFORMATION
  Report Type: Spontaneous
  Country: TW (occurrence: TW)
  Receive Date: 20200624
  Receipt Date: 20200624
  Transmission Date: 20200714
  Serious: Yes (Death)
  Sender: FDA-Public Use
  Company Number: NVSC2020TW176969

PATIENT
  Age: 36 Year
  Sex: Male

DRUGS (5)
  1. METHYLPREDNISOLONE. [Suspect]
     Active Substance: METHYLPREDNISOLONE
     Indication: T-CELL LYMPHOMA STAGE II
     Dosage: UNK
     Route: 065
  2. CISPLATIN. [Suspect]
     Active Substance: CISPLATIN
     Indication: T-CELL LYMPHOMA STAGE II
     Dosage: UNK
     Route: 065
  3. ETOPOSIDE. [Suspect]
     Active Substance: ETOPOSIDE
     Indication: T-CELL LYMPHOMA STAGE II
     Dosage: UNK
     Route: 065
  4. CYTARABINE. [Suspect]
     Active Substance: CYTARABINE
     Indication: T-CELL LYMPHOMA STAGE II
     Dosage: UNK
     Route: 065
  5. METHOTREXATE. [Suspect]
     Active Substance: METHOTREXATE
     Indication: T-CELL LYMPHOMA STAGE II
     Dosage: UNK
     Route: 065

REACTIONS (3)
  - Hemiplegia [Fatal]
  - Condition aggravated [Fatal]
  - Product use in unapproved indication [Unknown]
